FAERS Safety Report 4298436-5 (Version None)
Quarter: 2004Q1

REPORT INFORMATION
  Report Type: 
  Country: None (occurrence: None)
  Receive Date: 20040218
  Receipt Date: 20030724
  Transmission Date: 20041129
  Serious: No
  Sender: FDA-Public Use
  Company Number: US-BRISTOL-MYERS SQUIBB COMPANY-12335279

PATIENT
  Sex: Female

DRUGS (3)
  1. STADOL [Suspect]
     Indication: PAIN
     Dosage: 10MG/ML
     Route: 045
  2. OXYCONTIN [Concomitant]
  3. PROVIGIL [Concomitant]

REACTIONS (1)
  - DRUG SCREEN POSITIVE [None]
